FAERS Safety Report 5379401-3 (Version None)
Quarter: 2007Q3

REPORT INFORMATION
  Report Type: 
  Country: None (occurrence: None)
  Receive Date: 20070703
  Receipt Date: 20070622
  Transmission Date: 20080115
  Serious: Yes (Other)
  Sender: FDA-Public Use
  Company Number: 2007S1004602

PATIENT
  Age: 61 Year
  Sex: Female
  Weight: 55.7924 kg

DRUGS (4)
  1. NITROFURANTOIN MONOHYDRATE/MACROCRYSTALS [Suspect]
     Indication: URINARY TRACT INFECTION
     Dosage: 100 MG;TWICE A DAY;ORAL
     Route: 048
     Dates: start: 20070519, end: 20070519
  2. PROTONIX /01263201/ (CON.) [Concomitant]
  3. LIPITOR (CON.) [Concomitant]
  4. SYNTHROID (CON.) [Concomitant]

REACTIONS (10)
  - ABDOMINAL PAIN UPPER [None]
  - BACK INJURY [None]
  - CHEST DISCOMFORT [None]
  - CHILLS [None]
  - COUGH [None]
  - DYSGEUSIA [None]
  - NAUSEA [None]
  - PHARYNGOLARYNGEAL PAIN [None]
  - PYREXIA [None]
  - VOMITING [None]
